FAERS Safety Report 22016572 (Version 1)
Quarter: 2023Q1

REPORT INFORMATION
  Report Type: Spontaneous
  Country: US (occurrence: None)
  Receive Date: 20230217
  Receipt Date: 20230217
  Transmission Date: 20230417
  Serious: Yes (Death)
  Sender: FDA-Public Use
  Company Number: None

PATIENT
  Age: 50 Year
  Sex: Female

DRUGS (1)
  1. AMBRISENTAN [Suspect]
     Active Substance: AMBRISENTAN
     Indication: Pulmonary arterial hypertension
     Dosage: FREQUENCY : DAILY;?
     Route: 048
     Dates: start: 20230123, end: 20230210

REACTIONS (5)
  - Dyspnoea [None]
  - Abdominal distension [None]
  - Cardiac tamponade [None]
  - General physical health deterioration [None]
  - Cardio-respiratory arrest [None]

NARRATIVE: CASE EVENT DATE: 20230201
